FAERS Safety Report 5353049-9 (Version None)
Quarter: 2007Q2

REPORT INFORMATION
  Report Type: 
  Country: None (occurrence: None)
  Receive Date: 20070611
  Receipt Date: 20070602
  Transmission Date: 20071010
  Serious: Yes (Other)
  Sender: FDA-Public Use
  Company Number: US-PFIZER INC-2007039970

PATIENT
  Sex: Male

DRUGS (1)
  1. CELEBREX [Suspect]
     Indication: MUSCULOSKELETAL PAIN
     Route: 048

REACTIONS (5)
  - BLOOD URINE PRESENT [None]
  - CELLS IN URINE [None]
  - MALAISE [None]
  - NEPHROLITHIASIS [None]
  - RENAL HAEMORRHAGE [None]
